FAERS Safety Report 19037979 (Version 1)
Quarter: 2021Q1

REPORT INFORMATION
  Report Type: Spontaneous
  Country: US (occurrence: US)
  Receive Date: 20210322
  Receipt Date: 20210322
  Transmission Date: 20210420
  Serious: Yes (Other)
  Sender: FDA-Public Use
  Company Number: None

PATIENT
  Age: 72 Year
  Sex: Female

DRUGS (11)
  1. KEPPRA [Concomitant]
     Active Substance: LEVETIRACETAM
     Dates: start: 20210222
  2. ENALAPRIL 20MG [Concomitant]
     Active Substance: ENALAPRIL
     Dates: start: 20210222
  3. GABAPENTIN 400MG [Concomitant]
     Active Substance: GABAPENTIN
     Dates: start: 20210222
  4. ONDANSETRON. [Concomitant]
     Active Substance: ONDANSETRON
     Dates: start: 20210222
  5. NORVASC [Concomitant]
     Active Substance: AMLODIPINE BESYLATE
     Dates: start: 20210222
  6. NORCO [Concomitant]
     Active Substance: ACETAMINOPHEN\HYDROCODONE BITARTRATE
     Dates: start: 20210222
  7. TEMOZOLOMIDE. [Suspect]
     Active Substance: TEMOZOLOMIDE
     Indication: GLIOBLASTOMA
     Route: 048
     Dates: start: 20210224, end: 20210322
  8. OXYBUTYNIN 5MG [Concomitant]
     Active Substance: OXYBUTYNIN
     Dates: start: 20210222
  9. TRAIMTERENE 37.5/25MG [Concomitant]
     Dates: start: 20210222
  10. DOXEPIN 10MG [Concomitant]
     Dates: start: 20210222
  11. OMEPRAZOLE 40MG [Concomitant]
     Active Substance: OMEPRAZOLE
     Dates: start: 20210222

REACTIONS (1)
  - Drug ineffective [None]

NARRATIVE: CASE EVENT DATE: 20210322
